FAERS Safety Report 9735495 (Version 1)
Quarter: 2013Q4

REPORT INFORMATION
  Report Type: Spontaneous
  Country: US (occurrence: US)
  Receive Date: 20131206
  Receipt Date: 20131206
  Transmission Date: 20140711
  Serious: Yes (Other)
  Sender: FDA-Public Use
  Company Number: US-SA-2013SA126697

PATIENT
  Age: 58 Year
  Sex: Female

DRUGS (2)
  1. LANTUS SOLOSTAR [Suspect]
     Indication: TYPE 2 DIABETES MELLITUS
     Dosage: DOSE: 37- UNIT MORNING AND 62-UNIT EVENING.
     Route: 058
  2. SOLOSTAR [Concomitant]
     Indication: TYPE 2 DIABETES MELLITUS

REACTIONS (6)
  - Arthropathy [Unknown]
  - Abdominal pain upper [Unknown]
  - Back pain [Unknown]
  - Thyroid function test abnormal [Unknown]
  - Blood glucose abnormal [Unknown]
  - Visual acuity reduced [Unknown]
